FAERS Safety Report 5679903-6 (Version None)
Quarter: 2008Q1

REPORT INFORMATION
  Report Type: 
  Country: None (occurrence: None)
  Receive Date: 20080324
  Receipt Date: 20080318
  Transmission Date: 20080703
  Serious: Yes (Death, Life-Threatening)
  Sender: FDA-Public Use
  Company Number: 2008S1000022

PATIENT
  Age: 56 Year
  Sex: Male
  Weight: 133 kg

DRUGS (27)
  1. NITRIC OXIDE [Suspect]
     Indication: VENTRICULAR ASSIST DEVICE INSERTION
     Dosage: 40 PPM;CONT;INH
     Route: 055
     Dates: start: 20080123, end: 20080123
  2. HEPARIN [Concomitant]
  3. SUPRERENIN [Concomitant]
  4. SODIUM CHLORIDE [Concomitant]
  5. NITROGLYCERINE ^A.L.^ [Concomitant]
  6. INSULIN [Concomitant]
  7. KETAMINE HCL [Concomitant]
  8. AMIODARONE HCL [Concomitant]
  9. NOREPINEPHRINE BITARTRATE [Concomitant]
  10. FLUCONAZOLE [Concomitant]
  11. TORSEMIDE [Concomitant]
  12. DIGOXIN [Concomitant]
  13. NEOSTIGMINE [Concomitant]
  14. LACTULOSE [Concomitant]
  15. LEVOTHYROXINE SODIUM [Concomitant]
  16. ILOPROST [Concomitant]
  17. VANCOMYCIN [Concomitant]
  18. HYDROCORTISONE [Concomitant]
  19. RAMIPRIL [Concomitant]
  20. XIPAMID [Concomitant]
  21. SILDENAFIL CITRATE [Concomitant]
  22. METOCLOPRAMIDE [Concomitant]
  23. SIMETHICONE [Concomitant]
  24. MEROPENEM [Concomitant]
  25. ACETYLCYSTEINE [Concomitant]
  26. MIDAZOLAM HCL [Concomitant]
  27. FENTANYL [Concomitant]

REACTIONS (3)
  - HAEMORRHAGE [None]
  - MULTI-ORGAN FAILURE [None]
  - SEPTIC SHOCK [None]
